FAERS Safety Report 7368261-7 (Version None)
Quarter: 2011Q1

REPORT INFORMATION
  Report Type: 
  Country: None (occurrence: None)
  Receive Date: 20110311
  Receipt Date: 20110123
  Transmission Date: 20110831
  Serious: Yes (Hospitalization)
  Sender: FDA-Public Use
  Company Number: 76574

PATIENT
  Age: 3 Day
  Weight: 3.95 kg

DRUGS (1)
  1. ECONAZOLE NITRATE [Suspect]
     Indication: RASH
     Dosage: TOPICAL
     Route: 061

REACTIONS (3)
  - DRUG INEFFECTIVE [None]
  - NEONATAL RESPIRATORY DISTRESS SYNDROME [None]
  - PYREXIA [None]
